FAERS Safety Report 16981443 (Version 1)
Quarter: 2019Q4

REPORT INFORMATION
  Report Type: Spontaneous
  Country: US (occurrence: US)
  Receive Date: 20191031
  Receipt Date: 20191031
  Transmission Date: 20200122
  Serious: No
  Sender: FDA-Public Use
  Company Number: US-ABBVIE-18P-163-2556115-00

PATIENT
  Age: 69 Year
  Sex: Male
  Weight: 72.56 kg

DRUGS (3)
  1. PREVPAC [Suspect]
     Active Substance: AMOXICILLIN\CLARITHROMYCIN\LANSOPRAZOLE
     Indication: HELICOBACTER INFECTION
     Route: 048
     Dates: start: 201810, end: 20181020
  2. PREVPAC [Suspect]
     Active Substance: AMOXICILLIN\CLARITHROMYCIN\LANSOPRAZOLE
     Indication: HELICOBACTER INFECTION
     Dosage: UNK
     Route: 048
     Dates: start: 201810, end: 20181020
  3. PREVPAC [Suspect]
     Active Substance: AMOXICILLIN\CLARITHROMYCIN\LANSOPRAZOLE
     Indication: HELICOBACTER INFECTION
     Route: 048
     Dates: start: 201810, end: 20181020

REACTIONS (11)
  - Vestibular disorder [Recovered/Resolved]
  - Heart rate increased [Recovering/Resolving]
  - Night sweats [Recovering/Resolving]
  - Dizziness [Recovered/Resolved]
  - Dry mouth [Recovering/Resolving]
  - Gastrointestinal motility disorder [Recovering/Resolving]
  - Vision blurred [Recovering/Resolving]
  - Arthralgia [Recovering/Resolving]
  - Vertigo positional [Not Recovered/Not Resolved]
  - Fatigue [Recovering/Resolving]
  - Dysgeusia [Recovering/Resolving]

NARRATIVE: CASE EVENT DATE: 201810
